FAERS Safety Report 9443387 (Version 3)
Quarter: 2013Q3

REPORT INFORMATION
  Report Type: Spontaneous
  Country: JP (occurrence: JP)
  Receive Date: 20130806
  Receipt Date: 20130829
  Transmission Date: 20140515
  Serious: Yes (Death, Hospitalization)
  Sender: FDA-Public Use
  Company Number: PHHY2013JP083727

PATIENT
  Sex: 0

DRUGS (15)
  1. PIPERACILLIN+TAZOBACTAM [Suspect]
     Indication: NOSOCOMIAL INFECTION
  2. MEROPENEM [Suspect]
     Dates: end: 20100912
  3. CICLOSPORIN MYLAN [Suspect]
     Indication: APLASTIC ANAEMIA
     Dates: start: 20100830, end: 20100831
  4. CICLOSPORIN MYLAN [Suspect]
     Dosage: UNK
     Dates: start: 20100913
  5. LEVOFLOXACIN [Concomitant]
     Dates: end: 20100913
  6. THYMOGLOBULINE [Concomitant]
     Indication: APLASTIC ANAEMIA
     Dates: start: 20100830
  7. THYMOGLOBULINE [Concomitant]
     Dates: start: 20100913
  8. TRIMETHOPRIM SULFAMETHOXAZOLE [Concomitant]
  9. ITRIZOLE [Concomitant]
  10. HEPARIN [Concomitant]
     Indication: DEEP VEIN THROMBOSIS
  11. CIPROFLOXACIN [Concomitant]
     Indication: CELLULITIS
  12. CLINDAMYCIN [Concomitant]
     Indication: CELLULITIS
  13. CATCHOLAMINE [Concomitant]
     Indication: BLOOD PRESSURE DECREASED
  14. TOBRAMYCIN [Concomitant]
     Indication: BLOOD PRESSURE DECREASED
  15. VANCOMYCIN [Concomitant]
     Indication: BLOOD PRESSURE DECREASED

REACTIONS (14)
  - Disseminated intravascular coagulation [Fatal]
  - Cardio-respiratory arrest [Fatal]
  - Septic shock [Fatal]
  - Disorientation [Fatal]
  - Altered state of consciousness [Fatal]
  - Cellulitis [Fatal]
  - Local swelling [Fatal]
  - Myositis [Fatal]
  - Soft tissue inflammation [Fatal]
  - Pain in extremity [Fatal]
  - Soft tissue infection [Fatal]
  - Feeling hot [Fatal]
  - Pyrexia [Unknown]
  - Drug hypersensitivity [Unknown]
